FAERS Safety Report 9245981 (Version 1)
Quarter: 2013Q2

REPORT INFORMATION
  Report Type: Spontaneous
  Country: US (occurrence: US)
  Receive Date: 20130422
  Receipt Date: 20130422
  Transmission Date: 20140414
  Serious: Yes (Other)
  Sender: FDA-Public Use
  Company Number: US-TEVA-399695USA

PATIENT
  Sex: Female

DRUGS (1)
  1. BUDESONIDE [Suspect]
     Dosage: 0.5 MG/2 ML

REACTIONS (1)
  - Coeliac disease [Unknown]
